FAERS Safety Report 8009138-3 (Version None)
Quarter: 2011Q4

REPORT INFORMATION
  Report Type: 
  Country: None (occurrence: None)
  Receive Date: 20111221
  Receipt Date: 20111212
  Transmission Date: 20120403
  Serious: Yes (Hospitalization, Other)
  Sender: FDA-Public Use
  Company Number: 2011MA017611

PATIENT
  Age: 3 Year
  Sex: Female
  Weight: 10.5 kg

DRUGS (6)
  1. METHYLPREDNISOLONE [Suspect]
     Indication: EVIDENCE BASED TREATMENT
     Dosage: 2 MG/KG;QD;
  2. ACYCLOVIR [Suspect]
     Dosage: 40 MG/KG;QD;
  3. LORAZEPAM [Suspect]
     Indication: CONVULSION
     Dosage: 0.04 MG/KG;
  4. PHENYTOIN [Suspect]
     Indication: CONVULSION
     Dosage: 5 MG/KG;QD;IV
     Route: 042
  5. PHENOBARBITAL TAB [Suspect]
     Indication: CONVULSION
     Dosage: 5 MG/KG;QD;
  6. CLOBAZAM (CLOBAZAM) [Suspect]
     Indication: CONVULSION
     Dosage: 0.75 MG/KG;QD;

REACTIONS (5)
  - C-REACTIVE PROTEIN INCREASED [None]
  - CHOREA [None]
  - CALCIUM IONISED DECREASED [None]
  - HAEMOGLOBIN DECREASED [None]
  - DRUG INTERACTION [None]
